FAERS Safety Report 7326069-2 (Version None)
Quarter: 2011Q1

REPORT INFORMATION
  Report Type: 
  Country: None (occurrence: None)
  Receive Date: 20110218
  Receipt Date: 20110211
  Transmission Date: 20110831
  Serious: Yes (Other)
  Sender: FDA-Public Use
  Company Number: JPI-P-013891

PATIENT
  Age: 51 Year
  Sex: Male
  Weight: 88.4514 kg

DRUGS (10)
  1. CLONAZEPAM [Concomitant]
  2. VERAPAMIL [Concomitant]
  3. PRIMIDONE [Concomitant]
  4. PRAMIPEXOLE [Concomitant]
  5. XYREM [Suspect]
     Indication: CATAPLEXY
     Dosage: 6 GM (3 GM,2 IN 1 D),ORAL ; 3 GM (3 GM,1 IN 1 D),ORAL
     Route: 048
     Dates: start: 20110204, end: 20110209
  6. XYREM [Suspect]
     Indication: FIBROMYALGIA
     Dosage: 6 GM (3 GM,2 IN 1 D),ORAL ; 3 GM (3 GM,1 IN 1 D),ORAL
     Route: 048
     Dates: start: 20110204, end: 20110209
  7. XYREM [Suspect]
     Indication: CATAPLEXY
     Dosage: 6 GM (3 GM,2 IN 1 D),ORAL ; 3 GM (3 GM,1 IN 1 D),ORAL
     Route: 048
     Dates: start: 20110210, end: 20110210
  8. XYREM [Suspect]
     Indication: FIBROMYALGIA
     Dosage: 6 GM (3 GM,2 IN 1 D),ORAL ; 3 GM (3 GM,1 IN 1 D),ORAL
     Route: 048
     Dates: start: 20110210, end: 20110210
  9. VENLAFAXINE HYDROCHLORIDE [Concomitant]
  10. CARISOPRODOL [Concomitant]

REACTIONS (16)
  - CONDITION AGGRAVATED [None]
  - STEATORRHOEA [None]
  - SPEECH DISORDER [None]
  - VISUAL IMPAIRMENT [None]
  - DYSGEUSIA [None]
  - DYSKINESIA [None]
  - DIARRHOEA [None]
  - MUSCLE SPASMS [None]
  - SOMNAMBULISM [None]
  - BRUXISM [None]
  - TIC [None]
  - PAROSMIA [None]
  - EYE MOVEMENT DISORDER [None]
  - ESSENTIAL TREMOR [None]
  - LOSS OF CONSCIOUSNESS [None]
  - EXOPHTHALMOS [None]
